FAERS Safety Report 12743490 (Version 1)
Quarter: 2016Q3

REPORT INFORMATION
  Report Type: Spontaneous
  Country: DE (occurrence: DE)
  Receive Date: 20160914
  Receipt Date: 20160914
  Transmission Date: 20161109
  Serious: Yes (Other)
  Sender: FDA-Public Use
  Company Number: DE-TEVA-690751GER

PATIENT
  Age: 40 Year
  Sex: Male

DRUGS (1)
  1. TERBINAFIN-RATIOPHARM 250 MG TABLETTEN [Suspect]
     Active Substance: TERBINAFINE
     Route: 048
     Dates: start: 2016, end: 2016

REACTIONS (3)
  - Blood creatine phosphokinase increased [Not Recovered/Not Resolved]
  - Myalgia [Not Recovered/Not Resolved]
  - Movement disorder [Not Recovered/Not Resolved]

NARRATIVE: CASE EVENT DATE: 2016
